FAERS Safety Report 10586067 (Version 4)
Quarter: 2017Q1

REPORT INFORMATION
  Report Type: Report from Study
  Country: US (occurrence: US)
  Receive Date: 20141115
  Receipt Date: 20170213
  Transmission Date: 20170428
  Serious: Yes (Other)
  Sender: FDA-Public Use
  Company Number: US-SA-2014SA154819

PATIENT
  Age: 55 Year
  Sex: Female
  Weight: 108.86 kg

DRUGS (17)
  1. NOVOLOG [Concomitant]
     Active Substance: INSULIN ASPART
  2. COPAXONE [Suspect]
     Active Substance: GLATIRAMER ACETATE
     Indication: PRODUCT USED FOR UNKNOWN INDICATION
     Route: 065
  3. VESICARE [Concomitant]
     Active Substance: SOLIFENACIN SUCCINATE
  4. LEVEMIR [Concomitant]
     Active Substance: INSULIN DETEMIR
  5. NORVASC [Concomitant]
     Active Substance: AMLODIPINE BESYLATE
  6. CRESTOR [Concomitant]
     Active Substance: ROSUVASTATIN CALCIUM
  7. AUBAGIO [Suspect]
     Active Substance: TERIFLUNOMIDE
     Indication: MULTIPLE SCLEROSIS
     Route: 048
     Dates: start: 20140601
  8. LUNESTA [Concomitant]
     Active Substance: ESZOPICLONE
  9. AUBAGIO [Suspect]
     Active Substance: TERIFLUNOMIDE
     Indication: MULTIPLE SCLEROSIS
     Route: 048
     Dates: start: 20151028
  10. AMPYRA [Suspect]
     Active Substance: DALFAMPRIDINE
     Indication: PRODUCT USED FOR UNKNOWN INDICATION
     Route: 065
  11. BACLOFEN. [Concomitant]
     Active Substance: BACLOFEN
  12. PLEGRIDY [Suspect]
     Active Substance: PEGINTERFERON BETA-1A
     Indication: MULTIPLE SCLEROSIS
     Dosage: FREQUENCY: EVERY 14
     Route: 058
  13. GABAPENTIN. [Concomitant]
     Active Substance: GABAPENTIN
  14. REBIF [Suspect]
     Active Substance: INTERFERON BETA-1A
     Indication: PRODUCT USED FOR UNKNOWN INDICATION
     Route: 065
  15. RITALIN [Concomitant]
     Active Substance: METHYLPHENIDATE HYDROCHLORIDE
  16. JANUVIA [Concomitant]
     Active Substance: SITAGLIPTIN PHOSPHATE
  17. ESTRADIOL. [Concomitant]
     Active Substance: ESTRADIOL

REACTIONS (14)
  - Limb operation [Unknown]
  - Fatigue [Unknown]
  - Musculoskeletal discomfort [Unknown]
  - Dry throat [Unknown]
  - Alopecia [Not Recovered/Not Resolved]
  - Lacrimation increased [Unknown]
  - Unevaluable event [Unknown]
  - Hypoaesthesia [Unknown]
  - Gait disturbance [Unknown]
  - Fall [Unknown]
  - Arthropathy [Unknown]
  - Depression [Unknown]
  - Condition aggravated [Unknown]
  - Multiple sclerosis relapse [Unknown]
